FAERS Safety Report 16444259 (Version 1)
Quarter: 2019Q2

REPORT INFORMATION
  Report Type: Spontaneous
  Country: GB (occurrence: GB)
  Receive Date: 20190618
  Receipt Date: 20190618
  Transmission Date: 20190711
  Serious: Yes (Hospitalization)
  Sender: FDA-Public Use
  Company Number: GB-DEXPHARM-20190424

PATIENT
  Age: 74 Year
  Sex: Male

DRUGS (10)
  1. ATORVASTATIN [Concomitant]
     Active Substance: ATORVASTATIN
  2. DONEPEZIL NON DEXCEL PRODUCT [Suspect]
     Active Substance: DONEPEZIL
     Indication: DEMENTIA ALZHEIMER^S TYPE
     Dosage: BEDTIME. INCREASED FROM 5MG. DECREASED BACK TO 5MG ON 06MAY2019
     Route: 048
     Dates: end: 20190506
  3. BISOPROLOL [Concomitant]
     Active Substance: BISOPROLOL
  4. DONEPEZIL NON DEXCEL PRODUCT [Suspect]
     Active Substance: DONEPEZIL
     Indication: DEMENTIA ALZHEIMER^S TYPE
     Dosage: BEDTIME. INCREASED FROM 5MG. DECREASED BACK TO 5MG ON 06MAY2019
     Route: 048
     Dates: start: 20190506
  5. OMEPRAZOLE. [Suspect]
     Active Substance: OMEPRAZOLE
     Route: 048
     Dates: end: 20190507
  6. ISPAGHULA EXTRACT\PSYLLIUM [Concomitant]
     Active Substance: HERBALS\PLANTAGO OVATA SEED\PLANTAGO SEED
  7. NICORANDIL [Concomitant]
     Active Substance: NICORANDIL
  8. DONEPEZIL NON DEXCEL PRODUCT [Suspect]
     Active Substance: DONEPEZIL
     Indication: DEMENTIA ALZHEIMER^S TYPE
     Dosage: BEDTIME. INCREASED FROM 5MG. DECREASED BACK TO 5MG ON 06MAY2019
     Route: 048
  9. ACETYLSALICYLIC ACID [Concomitant]
     Active Substance: ASPIRIN
  10. PERINDOPRIL [Concomitant]
     Active Substance: PERINDOPRIL

REACTIONS (1)
  - Confusional state [Unknown]
